FAERS Safety Report 26107568 (Version 4)
Quarter: 2025Q4

REPORT INFORMATION
  Report Type: Spontaneous
  Country: CN (occurrence: CN)
  Receive Date: 20251201
  Receipt Date: 20251215
  Transmission Date: 20260118
  Serious: Yes (Death, Other)
  Sender: PFIZER
  Company Number: CN-PFIZER INC-PV202500139544

PATIENT
  Age: 76 Year
  Sex: Male

DRUGS (1)
  1. BENEFIX [Suspect]
     Active Substance: COAGULATION FACTOR IX RECOMBINANT HUMAN\ISOPROPYL ALCOHOL
     Indication: Haemophilia
     Dosage: ABOUT A DOZEN VIALS
     Route: 042

REACTIONS (2)
  - Post procedural complication [Fatal]
  - Craniotomy [Unknown]

NARRATIVE: CASE EVENT DATE: 20251028
